FAERS Safety Report 22971548 (Version 2)
Quarter: 2023Q4

REPORT INFORMATION
  Report Type: Spontaneous
  Country: US (occurrence: US)
  Receive Date: 20230922
  Receipt Date: 20231004
  Transmission Date: 20240110
  Serious: Yes (Other)
  Sender: FDA-Public Use
  Company Number: US-FreseniusKabi-FK202314462

PATIENT
  Age: 58 Year
  Sex: Male
  Weight: 80.1 kg

DRUGS (3)
  1. PROTAMINE SULFATE [Suspect]
     Active Substance: PROTAMINE SULFATE
     Indication: Procoagulant therapy
     Dosage: 250MG/25ML(TOTAL OF 300MG/30ML) ONCE?PROTAMINE 250MG IV AT 1715 RATE NOT DOCUMENTED?PROTAMINE 25MG I
     Route: 042
     Dates: start: 20230911, end: 20230911
  2. PROTAMINE SULFATE [Suspect]
     Active Substance: PROTAMINE SULFATE
     Dosage: 50MG/5ML(TOTAL OF 300MG/30ML) ONCE
     Route: 042
     Dates: start: 20230911, end: 20230911
  3. HEPARIN [Suspect]
     Active Substance: HEPARIN SODIUM
     Indication: Cardiopulmonary bypass
     Dosage: HEPARIN 10,000 UNITS IV AT 1139 ?HEPARIN 21,000 UNITS IV AT 1435 ?HEPARIN 3,000 UNITS IV AT 1557 ?HE
     Route: 042

REACTIONS (3)
  - Hypersensitivity [Recovering/Resolving]
  - Graft thrombosis [Recovering/Resolving]
  - Off label use [Unknown]

NARRATIVE: CASE EVENT DATE: 20230911
